FAERS Safety Report 8505273-1 (Version None)
Quarter: 2012Q2

REPORT INFORMATION
  Report Type: 
  Country: None (occurrence: None)
  Receive Date: 20120405
  Receipt Date: 20100609
  Transmission Date: 20120825
  Serious: Yes (Other)
  Sender: FDA-Public Use
  Company Number: PHHY2010US34807

PATIENT
  Age: 59 Year
  Sex: Female
  Weight: 104 kg

DRUGS (8)
  1. CALCIUM CARBONATE [Concomitant]
  2. NASACORT [Concomitant]
  3. EVISTA [Concomitant]
  4. RECLAST [Suspect]
     Indication: OSTEOPOROSIS
     Dosage: 5 MG, YEARLY, INTRAVENOUS
     Route: 042
     Dates: start: 20100504
  5. LIPITOR [Concomitant]
  6. PREVACID [Concomitant]
  7. ZYRTEC [Concomitant]
  8. VITAMIN D [Concomitant]

REACTIONS (18)
  - ARTHRALGIA [None]
  - FATIGUE [None]
  - MUSCULOSKELETAL CHEST PAIN [None]
  - PYREXIA [None]
  - DEPRESSION [None]
  - WEIGHT DECREASED [None]
  - CHEST PAIN [None]
  - ABDOMINAL DISTENSION [None]
  - VOMITING [None]
  - PALPITATIONS [None]
  - C-REACTIVE PROTEIN INCREASED [None]
  - JOINT SWELLING [None]
  - PAIN [None]
  - ASTHENIA [None]
  - CHILLS [None]
  - SINUS TACHYCARDIA [None]
  - JOINT STIFFNESS [None]
  - NAUSEA [None]
